FAERS Safety Report 6820389-3 (Version None)
Quarter: 2010Q3

REPORT INFORMATION
  Report Type: 
  Country: None (occurrence: None)
  Receive Date: 20100707
  Receipt Date: 20100703
  Transmission Date: 20110219
  Serious: Yes (Death)
  Sender: FDA-Public Use
  Company Number: FR-CELGENEUS-056-50794-10070161

PATIENT
  Sex: Male

DRUGS (1)
  1. VIDAZA [Suspect]
     Indication: PRODUCT USED FOR UNKNOWN INDICATION
     Route: 050

REACTIONS (2)
  - RESPIRATORY DISTRESS [None]
  - SEPTIC SHOCK [None]
